FAERS Safety Report 20804732 (Version 3)
Quarter: 2022Q2

REPORT INFORMATION
  Report Type: Spontaneous
  Country: CA (occurrence: CA)
  Receive Date: 20220509
  Receipt Date: 20220623
  Transmission Date: 20220721
  Serious: Yes (Hospitalization)
  Sender: FDA-Public Use
  Company Number: CA-PFIZER INC-202200643048

PATIENT
  Age: 7 Year
  Sex: Male
  Weight: 15.42 kg

DRUGS (4)
  1. SOMATROPIN [Suspect]
     Active Substance: SOMATROPIN
     Indication: Short stature
     Dosage: 400 UG, 6 TIMES PER WEEK
     Route: 058
     Dates: start: 20180115, end: 2018
  2. SOMATROPIN [Suspect]
     Active Substance: SOMATROPIN
     Dosage: 450 UG, 6 TIMES PER WEEK
     Route: 058
     Dates: start: 2018
  3. SOMATROPIN [Suspect]
     Active Substance: SOMATROPIN
     Dosage: 500 UG, 6 TIMES PER WEEK
     Route: 058
     Dates: end: 2022
  4. CHOLECALCIFEROL [Concomitant]
     Active Substance: CHOLECALCIFEROL
     Dosage: 600 IU, DAILY,  THROUGH DROPS
     Route: 048

REACTIONS (4)
  - Dehydration [Recovering/Resolving]
  - Weight decreased [Recovering/Resolving]
  - Constipation [Recovered/Resolved]
  - Eating disorder [Recovering/Resolving]

NARRATIVE: CASE EVENT DATE: 20220101
